FAERS Safety Report 13372047 (Version 2)
Quarter: 2017Q2

REPORT INFORMATION
  Report Type: Spontaneous
  Country: US (occurrence: US)
  Receive Date: 20170327
  Receipt Date: 20170628
  Transmission Date: 20170830
  Serious: No
  Sender: FDA-Public Use
  Company Number: US-ACCORD-048150

PATIENT
  Age: 81 Year
  Sex: Male
  Weight: 83.01 kg

DRUGS (1)
  1. DOXAZOSIN ACCORD [Suspect]
     Active Substance: DOXAZOSIN\DOXAZOSIN MESYLATE
     Indication: PROSTATE CANCER
     Dosage: FREQUENCY: QD?STRENGTH: 8 MG (WHITE FLAT SCORED C4)
     Route: 048
     Dates: start: 201610

REACTIONS (2)
  - Drug ineffective [Unknown]
  - Dysuria [Unknown]
